FAERS Safety Report 5518404-2 (Version None)
Quarter: 2007Q4

REPORT INFORMATION
  Report Type: 
  Country: None (occurrence: None)
  Receive Date: 20071115
  Receipt Date: 20071031
  Transmission Date: 20080405
  Serious: Yes (Other)
  Sender: FDA-Public Use
  Company Number: JP-ROCHE-525876

PATIENT
  Age: 70 Year
  Sex: Male

DRUGS (2)
  1. COPEGUS [Suspect]
     Route: 048
  2. PEGASYS [Suspect]
     Route: 058

REACTIONS (1)
  - LYMPHADENOPATHY [None]
